FAERS Safety Report 21472595 (Version 7)
Quarter: 2024Q1

REPORT INFORMATION
  Report Type: Spontaneous
  Country: US (occurrence: US)
  Receive Date: 20221018
  Receipt Date: 20240320
  Transmission Date: 20240410
  Serious: No
  Sender: FDA-Public Use
  Company Number: US-SA-SAC20221017000357

PATIENT
  Age: 83 Year
  Sex: Female

DRUGS (5)
  1. DUPIXENT [Suspect]
     Active Substance: DUPILUMAB
     Indication: Dermatitis allergic
     Dosage: 300 MG, QOW
     Route: 058
     Dates: start: 202203
  2. DUPIXENT [Suspect]
     Active Substance: DUPILUMAB
     Indication: Dermatitis contact
  3. DUPIXENT [Suspect]
     Active Substance: DUPILUMAB
     Indication: Dermatitis atopic
  4. IBUPROFEN [Concomitant]
     Active Substance: IBUPROFEN
  5. BACLOFEN [Concomitant]
     Active Substance: BACLOFEN

REACTIONS (9)
  - Visual impairment [Unknown]
  - Rebound eczema [Unknown]
  - Pruritus [Unknown]
  - Eczema [Unknown]
  - Blepharitis [Unknown]
  - Rash [Unknown]
  - Surgery [Unknown]
  - Product use in unapproved indication [Unknown]
  - Drug ineffective for unapproved indication [Unknown]

NARRATIVE: CASE EVENT DATE: 20220101
